FAERS Safety Report 23679454 (Version 2)
Quarter: 2024Q2

REPORT INFORMATION
  Report Type: Spontaneous
  Country: US (occurrence: US)
  Receive Date: 20240327
  Receipt Date: 20240503
  Transmission Date: 20240715
  Serious: Yes (Death, Life-Threatening, Hospitalization, Other)
  Sender: FDA-Public Use
  Company Number: US-AMGEN-USASP2024058595

PATIENT
  Age: 77 Year
  Sex: Male

DRUGS (2)
  1. BEVACIZUMAB [Suspect]
     Active Substance: BEVACIZUMAB
     Indication: Metastatic renal cell carcinoma
     Dosage: UNK
     Route: 065
  2. ERLOTINIB [Suspect]
     Active Substance: ERLOTINIB
     Indication: Metastatic renal cell carcinoma
     Dosage: UNK
     Route: 065

REACTIONS (9)
  - Death [Fatal]
  - Upper gastrointestinal haemorrhage [Unknown]
  - Duodenal ulcer [Unknown]
  - Hypotension [Unknown]
  - Agitation [Unknown]
  - Arthralgia [Unknown]
  - Sepsis [Unknown]
  - Haemoglobin decreased [Unknown]
  - Deep vein thrombosis [Unknown]
